FAERS Safety Report 23771315 (Version 1)
Quarter: 2024Q2

REPORT INFORMATION
  Report Type: Report from Study
  Country: CA (occurrence: CA)
  Receive Date: 20240423
  Receipt Date: 20240423
  Transmission Date: 20240716
  Serious: Yes (Other)
  Sender: FDA-Public Use
  Company Number: CA-CELLTRION INC.-2024CA009143

PATIENT

DRUGS (6)
  1. TRUXIMA [Suspect]
     Active Substance: RITUXIMAB-ABBS
     Indication: Rheumatoid arthritis
     Dosage: 1000 MG, DAY 1 AND15
     Route: 042
     Dates: start: 20230706
  2. METHOTREXATE [Concomitant]
     Active Substance: METHOTREXATE
     Dosage: 2.5 MG 6 TABS ONCE WEEKLY ON THURSDAYS
  3. HYDROCHLOROTHIAZIDE [Concomitant]
     Active Substance: HYDROCHLOROTHIAZIDE
     Dosage: 25 MG, 1 TAB ONCE DAILY
  4. FOLIC ACID [Concomitant]
     Active Substance: FOLIC ACID
     Dosage: 5 MG, (ONCE WEEKLY THE DAY AFTER METHOTREXATE
  5. MELOXICAM [Concomitant]
     Active Substance: MELOXICAM
     Dosage: 7.5 MG, 1 TAB ONCE DAILY
  6. VIT D [VITAMIN D NOS] [Concomitant]
     Dosage: 2000 IU, ONCE DAILY

REACTIONS (2)
  - Shoulder arthroplasty [Unknown]
  - Intentional dose omission [Unknown]
